FAERS Safety Report 17988049 (Version 1)
Quarter: 2020Q3

REPORT INFORMATION
  Report Type: Spontaneous
  Country: US (occurrence: US)
  Receive Date: 20200706
  Receipt Date: 20200706
  Transmission Date: 20201103
  Serious: Yes (Life-Threatening)
  Sender: FDA-Public Use
  Company Number: None

PATIENT
  Age: 19 Year
  Sex: Female
  Weight: 65.4 kg

DRUGS (10)
  1. CLOFAZIMINE [Concomitant]
     Active Substance: CLOFAZIMINE
  2. VITAMINS ADEK [Concomitant]
  3. CREON [Concomitant]
     Active Substance: PANCRELIPASE AMYLASE\PANCRELIPASE LIPASE\PANCRELIPASE PROTEASE
  4. BEDAQUILLINE [Concomitant]
     Active Substance: BEDAQUILINE
  5. TRIKAFTA [Suspect]
     Active Substance: ELEXACAFTOR\IVACAFTOR\TEZACAFTOR
     Indication: CYSTIC FIBROSIS
     Dosage: ?          OTHER DOSE:200/100/150MG,50MG;?
     Route: 048
     Dates: start: 20191126, end: 20191203
  6. CEFOXITIN [Suspect]
     Active Substance: CEFOXITIN SODIUM
     Indication: MYCOBACTERIUM ABSCESSUS INFECTION
     Route: 042
     Dates: start: 20191114, end: 20191203
  7. LEVALBUTEROL. [Concomitant]
     Active Substance: LEVALBUTEROL
  8. AZITHROMYCIN ANHYDROUS. [Concomitant]
     Active Substance: AZITHROMYCIN ANHYDROUS
  9. INHALED TOBRAMYCIN [Concomitant]
  10. ARIKAYCE [Concomitant]
     Active Substance: AMIKACIN

REACTIONS (14)
  - Hypoaesthesia oral [None]
  - Tachycardia [None]
  - Thrombocytopenia [None]
  - Erythema [None]
  - Eye swelling [None]
  - Pyrexia [None]
  - Sepsis [None]
  - Pruritus [None]
  - Diarrhoea [None]
  - Rash [None]
  - Hypotension [None]
  - Chills [None]
  - Drug reaction with eosinophilia and systemic symptoms [None]
  - Vomiting [None]

NARRATIVE: CASE EVENT DATE: 20191201
